FAERS Safety Report 6246614-8 (Version None)
Quarter: 2009Q2

REPORT INFORMATION
  Report Type: 
  Country: None (occurrence: None)
  Receive Date: 20090626
  Receipt Date: 20090611
  Transmission Date: 20091009
  Serious: Yes (Other)
  Sender: FDA-Public Use
  Company Number: US-BAYER-200923385NA

PATIENT
  Age: 59 Year
  Sex: Male
  Weight: 104 kg

DRUGS (2)
  1. LEUKINE [Suspect]
     Indication: MELANOMA RECURRENT
     Route: 042
     Dates: start: 20070201, end: 20080201
  2. LEUKINE [Suspect]
     Route: 042
     Dates: start: 20081101, end: 20090605

REACTIONS (2)
  - MELANOMA RECURRENT [None]
  - METASTATIC MALIGNANT MELANOMA [None]
